FAERS Safety Report 10053733 (Version 4)
Quarter: 2014Q2

REPORT INFORMATION
  Report Type: Report from Study
  Country: AU (occurrence: AU)
  Receive Date: 20140402
  Receipt Date: 20140507
  Transmission Date: 20141212
  Serious: Yes (Hospitalization)
  Sender: FDA-Public Use
  Company Number: PHHY2014AU039511

PATIENT
  Age: 53 Year
  Sex: Male

DRUGS (2)
  1. CLOZARIL [Suspect]
     Dosage: 400 MG, UNK
     Dates: start: 20111005, end: 20140318
  2. CLOZARIL [Suspect]
     Dosage: 400 MG, UNK
     Dates: end: 20140415

REACTIONS (5)
  - Cardiac disorder [Unknown]
  - Cardiogenic shock [Unknown]
  - Circulatory collapse [Unknown]
  - Coronary artery occlusion [Unknown]
  - Myocardial infarction [Unknown]
